FAERS Safety Report 10183074 (Version 1)
Quarter: 2014Q2

REPORT INFORMATION
  Report Type: Spontaneous
  Country: US (occurrence: US)
  Receive Date: 20140520
  Receipt Date: 20140520
  Transmission Date: 20141212
  Serious: No
  Sender: FDA-Public Use
  Company Number: US-BAYER-2014-074221

PATIENT
  Age: 77 Year
  Sex: Male
  Weight: 82 kg

DRUGS (2)
  1. ALEVE CAPLET [Suspect]
     Indication: NECK PAIN
     Route: 048
  2. ALEVE CAPLET [Suspect]
     Indication: MUSCULOSKELETAL PAIN

REACTIONS (3)
  - Intentional product misuse [None]
  - Foreign body [None]
  - Expired product administered [None]
